FAERS Safety Report 6148938-1 (Version None)
Quarter: 2009Q2

REPORT INFORMATION
  Report Type: 
  Country: None (occurrence: None)
  Receive Date: 20090406
  Receipt Date: 20090325
  Transmission Date: 20091009
  Serious: Yes (Hospitalization, Disabling, Other)
  Sender: FDA-Public Use
  Company Number: CIP08001077

PATIENT
  Age: 52 Year
  Sex: Male

DRUGS (23)
  1. DIDRONEL [Suspect]
     Indication: CALCIFICATION METASTATIC
     Dosage: 200 MG AT BEDTIME, ORAL
     Route: 048
     Dates: start: 20050506, end: 20050520
  2. DIDRONEL [Suspect]
     Indication: OSTEOPOROSIS
     Dosage: 200 MG AT BEDTIME, ORAL
     Route: 048
     Dates: start: 20050506, end: 20050520
  3. DIDRONEL [Suspect]
     Indication: CALCIFICATION METASTATIC
     Dosage: 200 MG AT BEDTIME, ORAL
     Route: 048
     Dates: start: 20050731, end: 20050814
  4. DIDRONEL [Suspect]
     Indication: OSTEOPOROSIS
     Dosage: 200 MG AT BEDTIME, ORAL
     Route: 048
     Dates: start: 20050731, end: 20050814
  5. DIDRONEL [Suspect]
     Indication: CALCIFICATION METASTATIC
     Dosage: 200 MG AT BEDTIME, ORAL
     Route: 048
     Dates: start: 20060222, end: 20071101
  6. DIDRONEL [Suspect]
     Indication: OSTEOPOROSIS
     Dosage: 200 MG AT BEDTIME, ORAL
     Route: 048
     Dates: start: 20060222, end: 20071101
  7. DIDRONEL [Suspect]
     Indication: CALCIFICATION METASTATIC
     Dosage: 200 MG AT BEDTIME, ORAL
     Route: 048
     Dates: start: 20080320, end: 20080419
  8. DIDRONEL [Suspect]
     Indication: OSTEOPOROSIS
     Dosage: 200 MG AT BEDTIME, ORAL
     Route: 048
     Dates: start: 20080320, end: 20080419
  9. NEUROVITAN /00176001/ (CYANOCOBALAMIN, PYRIDOXINE HYDROCHLORIDE, THIAM [Concomitant]
  10. ALLOPURINOL [Concomitant]
  11. TAURINE (TAURINE) [Concomitant]
  12. LANSOPRAZOLE [Concomitant]
  13. LIVACT /00847901/ (VALINE, LEUCINE, ISOLEUCINE) [Concomitant]
  14. METHYCOBAL /00324901/ (MECOBALAMIN) [Concomitant]
  15. GASTROM (ECABET MONOSODIUM) [Concomitant]
  16. PROMAC /01312301/ (POLAPREZINC) [Concomitant]
  17. ANPLAG (SARPOGRELATE HYDROCHLORIDE) [Concomitant]
  18. PORTOLAC (LACTITOL) [Concomitant]
  19. TULOBUTEROL (TULOBUTEROL) [Concomitant]
  20. LACTULOSE [Concomitant]
  21. METLIGINE (MIDODRINE HYDROCHLORIDE) [Concomitant]
  22. MOHRUS (KETOPROFEN) [Concomitant]
  23. CALTAN (CALCIUM CARBONATE) [Concomitant]

REACTIONS (25)
  - AMMONIA INCREASED [None]
  - ARTHRALGIA [None]
  - ARTHROPATHY [None]
  - ASCITES [None]
  - BURSITIS [None]
  - C-REACTIVE PROTEIN INCREASED [None]
  - CONDITION AGGRAVATED [None]
  - DECREASED ACTIVITY [None]
  - FEMORAL NECK FRACTURE [None]
  - FRACTURE DELAYED UNION [None]
  - GAIT DISTURBANCE [None]
  - HYPOPROTEINAEMIA [None]
  - INCORRECT DRUG ADMINISTRATION DURATION [None]
  - INFLAMMATION [None]
  - MUSCULOSKELETAL PAIN [None]
  - OSTEOPOROSIS [None]
  - PAIN IN EXTREMITY [None]
  - PAPILLOPHLEBITIS [None]
  - PLEURAL EFFUSION [None]
  - PULMONARY OEDEMA [None]
  - QUALITY OF LIFE DECREASED [None]
  - RADIUS FRACTURE [None]
  - RIB FRACTURE [None]
  - ULNA FRACTURE [None]
  - VASCULITIS [None]
